FAERS Safety Report 8441530 (Version 4)
Quarter: 2013Q1

REPORT INFORMATION
  Report Type: Spontaneous
  Country: US (occurrence: US)
  Receive Date: 20120305
  Receipt Date: 20130320
  Transmission Date: 20140127
  Serious: Yes (Hospitalization, Other)
  Sender: FDA-Public Use
  Company Number: US-PFIZER INC-2012055602

PATIENT
  Age: 80 Year
  Sex: Female
  Weight: 59.86 kg

DRUGS (6)
  1. LIPITOR [Suspect]
     Indication: BLOOD CHOLESTEROL INCREASED
     Dosage: 10 MG, 1X/DAY
  2. ACCUPRIL [Suspect]
     Indication: CARDIAC DISORDER
     Dosage: 20 MG, 1X/DAY
  3. ACCUPRIL [Suspect]
     Indication: BLOOD PRESSURE ABNORMAL
  4. AMLODIPINE [Concomitant]
     Dosage: UNK
  5. NADOLOL [Concomitant]
     Dosage: 20 MG, 1X/DAY
  6. TICLOPIDINE HYDROCHLORIDE [Concomitant]
     Indication: BLOOD PRESSURE ABNORMAL
     Dosage: 5 MG, 1X/DAY

REACTIONS (6)
  - Fall [Unknown]
  - Hip fracture [Unknown]
  - Hypokinesia [Unknown]
  - Malaise [Unknown]
  - Muscular weakness [Unknown]
  - Balance disorder [Unknown]
